FAERS Safety Report 18360385 (Version 1)
Quarter: 2020Q4

REPORT INFORMATION
  Report Type: Spontaneous
  Country: US (occurrence: US)
  Receive Date: 20201008
  Receipt Date: 20201008
  Transmission Date: 20210114
  Serious: No
  Sender: FDA-Public Use
  Company Number: None

PATIENT
  Age: 68 Year
  Sex: Female
  Weight: 108.86 kg

DRUGS (1)
  1. RASUVO [Suspect]
     Active Substance: METHOTREXATE SODIUM
     Indication: RHEUMATOID ARTHRITIS
     Dosage: INJECT 10MG (0.2ML) SUBCUTANEOUSLY  ONCE WEEKLY ON THE SAME DAY EACH WEEK  AS DIRECTED
     Route: 058
     Dates: start: 201912

REACTIONS (1)
  - Pulmonary thrombosis [None]
